FAERS Safety Report 13181496 (Version 1)
Quarter: 2017Q1

REPORT INFORMATION
  Report Type: Spontaneous
  Country: US (occurrence: US)
  Receive Date: 20170202
  Receipt Date: 20170202
  Transmission Date: 20170428
  Serious: Yes (Death)
  Sender: FDA-Public Use
  Company Number: US-CELGENEUS-USA-2017018626

PATIENT

DRUGS (3)
  1. PRACINOSTAT [Suspect]
     Active Substance: PRACINOSTAT
     Indication: MYELODYSPLASTIC SYNDROME
     Dosage: 60 MILLIGRAM
     Route: 048
  2. VIDAZA [Suspect]
     Active Substance: AZACITIDINE
     Indication: MYELODYSPLASTIC SYNDROME
     Dosage: 75 MILLIGRAM/SQ. METER
     Route: 041
  3. PRACINOSTAT [Suspect]
     Active Substance: PRACINOSTAT
     Dosage: 60 MILLIGRAM
     Route: 048

REACTIONS (1)
  - Febrile neutropenia [Fatal]
